FAERS Safety Report 18342893 (Version 2)
Quarter: 2020Q4

REPORT INFORMATION
  Report Type: Report from Study
  Country: US (occurrence: US)
  Receive Date: 20201005
  Receipt Date: 20201224
  Transmission Date: 20210113
  Serious: Yes (Hospitalization, Other)
  Sender: FDA-Public Use
  Company Number: US-GLAXOSMITHKLINE-US2020GSK192043

PATIENT
  Age: 63 Year
  Sex: Female

DRUGS (1)
  1. BELANTAMAB MAFODOTIN. [Suspect]
     Active Substance: BELANTAMAB MAFODOTIN
     Indication: PLASMA CELL MYELOMA
     Dosage: UNK, CYC
     Route: 042

REACTIONS (5)
  - Transaminases increased [Unknown]
  - Abdominal pain [Not Recovered/Not Resolved]
  - Blood creatinine increased [Unknown]
  - Appendicitis [Unknown]
  - Intestinal mass [Unknown]

NARRATIVE: CASE EVENT DATE: 20200903
